FAERS Safety Report 7905526-1 (Version None)
Quarter: 2011Q4

REPORT INFORMATION
  Report Type: 
  Country: None (occurrence: None)
  Receive Date: 20111110
  Receipt Date: 20111103
  Transmission Date: 20120403
  Serious: No
  Sender: FDA-Public Use
  Company Number: US-BIOGENIDEC-2011BI037261

PATIENT
  Age: 52 Year
  Sex: Female

DRUGS (2)
  1. TYSABRI [Suspect]
     Indication: MULTIPLE SCLEROSIS
     Route: 042
     Dates: start: 20080909, end: 20090814
  2. TYSABRI [Suspect]
     Route: 042
     Dates: start: 20090917

REACTIONS (6)
  - HEADACHE [None]
  - SINUS DISORDER [None]
  - SINUS CONGESTION [None]
  - CHRONIC SINUSITIS [None]
  - NASAL SEPTUM DEVIATION [None]
  - UPPER RESPIRATORY TRACT INFECTION [None]
